FAERS Safety Report 11977772 (Version 1)
Quarter: 2016Q1

REPORT INFORMATION
  Report Type: Spontaneous
  Country: PT (occurrence: PT)
  Receive Date: 20160129
  Receipt Date: 20160129
  Transmission Date: 20160526
  Serious: Yes (Hospitalization, Other)
  Sender: FDA-Public Use
  Company Number: PT-GILEAD-2016-0194219

PATIENT
  Sex: Male

DRUGS (2)
  1. HARVONI [Suspect]
     Active Substance: LEDIPASVIR\SOFOSBUVIR
     Indication: HEPATITIS C
     Dosage: UNK
     Route: 065
     Dates: start: 201508, end: 20160115
  2. RIBAVIRIN. [Suspect]
     Active Substance: RIBAVIRIN
     Indication: HEPATITIS C
     Dosage: UNK
     Route: 065
     Dates: end: 20160115

REACTIONS (17)
  - Dehydration [Unknown]
  - Cholelithiasis [Unknown]
  - Abdominal distension [Unknown]
  - Aspiration [Unknown]
  - Diarrhoea [Recovered/Resolved]
  - Coma [Unknown]
  - Brain death [Unknown]
  - Pneumonia [Recovered/Resolved]
  - Hernia [Recovered/Resolved]
  - Vomiting [Recovered/Resolved]
  - Insomnia [Unknown]
  - Cardiac arrest [Unknown]
  - Ammonia increased [Unknown]
  - Encephalopathy [Unknown]
  - Epilepsy [Unknown]
  - Blood sodium increased [Unknown]
  - Fatigue [Unknown]

NARRATIVE: CASE EVENT DATE: 2015
